FAERS Safety Report 16261635 (Version 5)
Quarter: 2022Q2

REPORT INFORMATION
  Report Type: Spontaneous
  Country: US (occurrence: None)
  Receive Date: 20190501
  Receipt Date: 20220602
  Transmission Date: 20220720
  Serious: Yes (Other)
  Sender: FDA-Public Use
  Company Number: 2019SE11485

PATIENT
  Age: 61 Year
  Sex: Male

DRUGS (51)
  1. NEXIUM [Suspect]
     Active Substance: ESOMEPRAZOLE MAGNESIUM
     Indication: Gastrooesophageal reflux disease
     Dosage: FOR VARIOUS DATES AND YEARS PRIOR TO AND/OR INCLUDING THE DATES OF PLAINTIFF^S INJURY OR INJURIES
     Route: 048
  2. NEXIUM [Suspect]
     Active Substance: ESOMEPRAZOLE MAGNESIUM
     Indication: Gastrooesophageal reflux disease
     Dosage: 20.0MG UNKNOWN
     Route: 048
  3. NEXIUM [Suspect]
     Active Substance: ESOMEPRAZOLE MAGNESIUM
     Indication: Gastrooesophageal reflux disease
     Dosage: 20 MG UNKNOWN
     Route: 048
     Dates: start: 20151204
  4. NEXIUM [Suspect]
     Active Substance: ESOMEPRAZOLE MAGNESIUM
     Indication: Gastrooesophageal reflux disease
     Dosage: UNKNOWN
     Route: 048
     Dates: start: 2015, end: 2016
  5. NEXIUM [Suspect]
     Active Substance: ESOMEPRAZOLE MAGNESIUM
     Indication: Gastrooesophageal reflux disease
     Dosage: GENERIC UNKNOWN
     Route: 065
  6. AMLODIPINE BESYLATE [Concomitant]
     Active Substance: AMLODIPINE BESYLATE
  7. FUROSEMIDE [Concomitant]
     Active Substance: FUROSEMIDE
  8. ACETAMINOPHEN\HYDROCODONE BITARTRATE [Concomitant]
     Active Substance: ACETAMINOPHEN\HYDROCODONE BITARTRATE
  9. DOXAZOSIN [Concomitant]
     Active Substance: DOXAZOSIN MESYLATE
  10. PROMETHAZINE [Concomitant]
     Active Substance: PROMETHAZINE HYDROCHLORIDE
  11. GABAPENTIN [Concomitant]
     Active Substance: GABAPENTIN
  12. LYRICA [Concomitant]
     Active Substance: PREGABALIN
  13. POTASSIUM CHLORIDE [Concomitant]
     Active Substance: POTASSIUM CHLORIDE
  14. CLOPIDOGREL BISULFATE [Concomitant]
     Active Substance: CLOPIDOGREL BISULFATE
  15. ATORVASTATIN CALCIUM [Concomitant]
     Active Substance: ATORVASTATIN CALCIUM
  16. HYDROCHLOROTHIAZIDE [Concomitant]
     Active Substance: HYDROCHLOROTHIAZIDE
  17. TAMSULOSIN [Concomitant]
     Active Substance: TAMSULOSIN
  18. LISINOPRIL [Concomitant]
     Active Substance: LISINOPRIL
  19. METOPROLOL [Concomitant]
     Active Substance: METOPROLOL
  20. CIPROFLOXACIN [Concomitant]
     Active Substance: CIPROFLOXACIN
  21. DOXYCYCLINE [Concomitant]
     Active Substance: DOXYCYCLINE
  22. METOCLOPRAMIDE [Concomitant]
     Active Substance: METOCLOPRAMIDE
  23. HUMULIN NOS [Concomitant]
     Active Substance: INSULIN HUMAN
  24. LORATADINE [Concomitant]
     Active Substance: LORATADINE
  25. FLURBIPROFEN [Concomitant]
     Active Substance: FLURBIPROFEN
  26. MECLIZINE [Concomitant]
     Active Substance: MECLIZINE HYDROCHLORIDE
  27. NOVOLOG [Concomitant]
     Active Substance: INSULIN ASPART
  28. CEPHALEXIN [Concomitant]
     Active Substance: CEPHALEXIN
  29. ACETAMINOPHEN\CODEINE PHOSPHATE [Concomitant]
     Active Substance: ACETAMINOPHEN\CODEINE PHOSPHATE
  30. MINOCYCLINE [Concomitant]
     Active Substance: MINOCYCLINE HYDROCHLORIDE
  31. BENZONATATE [Concomitant]
     Active Substance: BENZONATATE
  32. METOPROLOL TARTRATE [Concomitant]
     Active Substance: METOPROLOL TARTRATE
  33. XYLOCAINE [Concomitant]
     Active Substance: LIDOCAINE HYDROCHLORIDE
  34. BUTRANE [Concomitant]
  35. LISINOPRIL AND HYDROCHLOROTHIAZIDE [Concomitant]
     Active Substance: HYDROCHLOROTHIAZIDE\LISINOPRIL
  36. BUFFERIN [Concomitant]
     Active Substance: ASPIRIN
  37. HUMALOG [Concomitant]
     Active Substance: INSULIN LISPRO
  38. BACTRIM [Concomitant]
     Active Substance: SULFAMETHOXAZOLE\TRIMETHOPRIM
  39. BASAGLAR [Concomitant]
     Active Substance: INSULIN GLARGINE
  40. INSULIN NOS [Concomitant]
     Active Substance: INSULIN NOS
  41. PROROETHAZINE [Concomitant]
  42. HYDROMORPHONE [Concomitant]
     Active Substance: HYDROMORPHONE
  43. OXYCODONE HYDROCHLORIDE [Concomitant]
     Active Substance: OXYCODONE HYDROCHLORIDE
  44. PHENCYCLIDINE [Concomitant]
     Active Substance: PHENCYCLIDINE
  45. CODEINE [Concomitant]
     Active Substance: CODEINE
  46. UNSPECIFIED INGREDIENT [Concomitant]
     Active Substance: UNSPECIFIED INGREDIENT
  47. VITAMINS [Concomitant]
     Active Substance: VITAMINS
  48. IBUPROFEN [Concomitant]
     Active Substance: IBUPROFEN
  49. ASPIRIN [Concomitant]
     Active Substance: ASPIRIN
  50. MEGACE [Concomitant]
     Active Substance: MEGESTROL ACETATE
  51. MEROPENEM [Concomitant]
     Active Substance: MEROPENEM

REACTIONS (6)
  - Renal failure [Not Recovered/Not Resolved]
  - Chronic kidney disease [Unknown]
  - Renal injury [Unknown]
  - Nephrogenic anaemia [Unknown]
  - Acute kidney injury [Unknown]
  - Rebound acid hypersecretion [Unknown]

NARRATIVE: CASE EVENT DATE: 20110101
